FAERS Safety Report 7624864-3 (Version None)
Quarter: 2011Q3

REPORT INFORMATION
  Report Type: 
  Country: None (occurrence: None)
  Receive Date: 20110720
  Receipt Date: 20090907
  Transmission Date: 20111222
  Serious: Yes (Other)
  Sender: FDA-Public Use
  Company Number: DE-GENENTECH-321728

PATIENT
  Age: 73 Year
  Sex: Female

DRUGS (1)
  1. LUCENTIS [Suspect]
     Indication: AGE-RELATED MACULAR DEGENERATION
     Dosage: UNK
     Route: 031

REACTIONS (4)
  - EYE DISORDER [None]
  - CHOROIDAL NEOVASCULARISATION [None]
  - VISUAL ACUITY REDUCED [None]
  - EYE HAEMORRHAGE [None]
